FAERS Safety Report 21919263 (Version 1)
Quarter: 2023Q1

REPORT INFORMATION
  Report Type: Spontaneous
  Country: US (occurrence: None)
  Receive Date: 20230126
  Receipt Date: 20230126
  Transmission Date: 20230417
  Serious: No
  Sender: FDA-Public Use
  Company Number: None

PATIENT
  Age: 44 Year
  Sex: Male

DRUGS (1)
  1. FINGOLIMOD HYDROCHLORIDE [Suspect]
     Active Substance: FINGOLIMOD HYDROCHLORIDE
     Indication: Multiple sclerosis
     Dosage: FREQUENCY : DAILY;?
     Route: 048
     Dates: start: 20160921

REACTIONS (5)
  - Fatigue [None]
  - Respiratory rate decreased [None]
  - Hypoaesthesia [None]
  - Aphasia [None]
  - Paraesthesia [None]

NARRATIVE: CASE EVENT DATE: 20220107
